FAERS Safety Report 5501164-9 (Version None)
Quarter: 2007Q4

REPORT INFORMATION
  Report Type: 
  Country: None (occurrence: None)
  Receive Date: 20071026
  Receipt Date: 20071012
  Transmission Date: 20080405
  Serious: Yes (Hospitalization)
  Sender: FDA-Public Use
  Company Number: 2007001820

PATIENT
  Age: 56 Year
  Sex: Male

DRUGS (12)
  1. ERLOTINIB (TABLET) [Suspect]
     Indication: PANCREATIC CARCINOMA METASTATIC
     Dosage: (100 MG,QD), ORAL
     Route: 048
     Dates: start: 20070323, end: 20070713
  2. BEVACIZUMAB (INJECTION FOR INFUSION) [Suspect]
     Indication: PANCREATIC CARCINOMA METASTATIC
     Dosage: (10MG/M2,Q2W), INTRAVENOUS
     Route: 042
     Dates: start: 20070323, end: 20070629
  3. GEMCITABINE [Suspect]
     Indication: PANCREATIC CARCINOMA METASTATIC
     Dosage: (1000 MG/M2, Q4W), INTRAVENOUS
     Route: 042
     Dates: start: 20070323, end: 20070629
  4. EVEROLIMUS (EVEROLIMUS) [Suspect]
     Dosage: (10 MG,QD), ORAL
     Route: 048
     Dates: start: 20070727
  5. ASPIRIN [Concomitant]
  6. CELEBREX [Concomitant]
  7. COMPAZINE [Concomitant]
  8. DIOVAN [Concomitant]
  9. GLIMEPIRIDE [Concomitant]
  10. GLUCOPHAGE [Concomitant]
  11. JANUVIA [Concomitant]
  12. PROTONIX [Concomitant]

REACTIONS (6)
  - FISTULA [None]
  - PERIANAL ABSCESS [None]
  - TESTICULAR PAIN [None]
  - THROMBOCYTOPENIA [None]
  - WHITE BLOOD CELL COUNT ABNORMAL [None]
  - WOUND COMPLICATION [None]
